FAERS Safety Report 5149728-9 (Version None)
Quarter: 2006Q4

REPORT INFORMATION
  Report Type: 
  Country: None (occurrence: None)
  Receive Date: 20061113
  Receipt Date: 20061107
  Transmission Date: 20070319
  Serious: Yes (Hospitalization)
  Sender: FDA-Public Use
  Company Number: 2006SE06007

PATIENT
  Age: 18275 Day
  Sex: Female
  Weight: 81 kg

DRUGS (3)
  1. SEROQUEL [Suspect]
     Indication: PSYCHOTIC DISORDER
     Route: 048
     Dates: start: 20060915, end: 20060928
  2. CARBOLITHIUM [Concomitant]
     Route: 048
  3. LARGACTIL [Concomitant]
     Route: 048
     Dates: start: 20060915

REACTIONS (3)
  - DELUSION [None]
  - HALLUCINATION [None]
  - PERSECUTORY DELUSION [None]
